FAERS Safety Report 18241966 (Version 2)
Quarter: 2020Q3

REPORT INFORMATION
  Report Type: Spontaneous
  Country: US (occurrence: US)
  Receive Date: 20200908
  Receipt Date: 20200916
  Transmission Date: 20201103
  Serious: No
  Sender: FDA-Public Use
  Company Number: NVSC2020US244592

PATIENT

DRUGS (1)
  1. PATADAY [Suspect]
     Active Substance: OLOPATADINE HYDROCHLORIDE
     Indication: PRODUCT USED FOR UNKNOWN INDICATION
     Dosage: 2 DRP, BID
     Route: 047
     Dates: start: 20200812, end: 20200831

REACTIONS (2)
  - Drug ineffective [Unknown]
  - Eye pruritus [Not Recovered/Not Resolved]
